FAERS Safety Report 8215212-9 (Version None)
Quarter: 2012Q1

REPORT INFORMATION
  Report Type: 
  Country: None (occurrence: None)
  Receive Date: 20120316
  Receipt Date: 20120309
  Transmission Date: 20120608
  Serious: Yes (Other)
  Sender: FDA-Public Use
  Company Number: US-BAYER-2012-024049

PATIENT
  Sex: Female

DRUGS (2)
  1. ASPIRIN [Suspect]
     Dosage: 500 MG, UNK
  2. ASPIRIN [Suspect]
     Dosage: 325 MG, UNK

REACTIONS (1)
  - CEREBROVASCULAR ACCIDENT [None]
